FAERS Safety Report 8380603-2 (Version None)
Quarter: 2012Q2

REPORT INFORMATION
  Report Type: 
  Country: None (occurrence: None)
  Receive Date: 20120523
  Receipt Date: 20111101
  Transmission Date: 20120825
  Serious: Yes (Hospitalization)
  Sender: FDA-Public Use
  Company Number: IL-ROCHE-1067274

PATIENT
  Age: 73 Year
  Sex: Male

DRUGS (4)
  1. ETOPOSIDE [Concomitant]
     Dosage: DAY 1 TO 4
  2. CISPLATIN (NON-ROCHE/NON-COMPARATOR) [Concomitant]
     Dosage: ON DAY 1 TO 4
  3. MABTHERA [Suspect]
     Indication: DIFFUSE LARGE B-CELL LYMPHOMA
  4. METHYLPREDNISOLONE ACETATE [Concomitant]
     Dosage: ON DAY 1 TO 4

REACTIONS (2)
  - DRUG INEFFECTIVE [None]
  - DEEP VEIN THROMBOSIS [None]
